FAERS Safety Report 17584571 (Version 1)
Quarter: 2020Q1

REPORT INFORMATION
  Report Type: Report from Study
  Country: CO (occurrence: CO)
  Receive Date: 20200326
  Receipt Date: 20200326
  Transmission Date: 20200409
  Serious: Yes (Hospitalization, Other)
  Sender: FDA-Public Use
  Company Number: CO-ROCHE-2508775

PATIENT
  Sex: Female

DRUGS (1)
  1. MABTHERA [Suspect]
     Active Substance: RITUXIMAB
     Indication: PRODUCT USED FOR UNKNOWN INDICATION
     Route: 065

REACTIONS (15)
  - Diverticulitis [Unknown]
  - Platelet count decreased [Unknown]
  - Back pain [Unknown]
  - Diarrhoea [Unknown]
  - Renal failure [Unknown]
  - Spinal pain [Unknown]
  - Haemoglobin decreased [Unknown]
  - Influenza [Unknown]
  - Peripheral swelling [Unknown]
  - Blood potassium decreased [Unknown]
  - Blood glucose increased [Unknown]
  - Abdominal discomfort [Unknown]
  - Pyrexia [Unknown]
  - Vomiting [Unknown]
  - Malaise [Unknown]
